FAERS Safety Report 9524179 (Version 1)
Quarter: 2013Q1

REPORT INFORMATION
  Report Type: Spontaneous
  Country: US (occurrence: None)
  Receive Date: 20130305
  Receipt Date: 20130305
  Transmission Date: 20140127
  Serious: Yes (Other)
  Sender: FDA-Public Use
  Company Number: 163-21880-12021035

PATIENT
  Age: 62 Year
  Sex: Female

DRUGS (20)
  1. REVLIMID [Suspect]
     Indication: PLASMA CELL MYELOMA
     Dosage: 25 MG, 1 IN 1 D, PO
     Route: 048
     Dates: start: 200901
  2. CLONAZEPAM (CLONAZEPAM) (TABLETS)? [Concomitant]
  3. DEXAMTHASONE (DEXAMETHASONE) (TABLETS) [Concomitant]
  4. AZITHROMYCIN (AZITHROMYCIN) (TABLETS) [Concomitant]
  5. FAMOTIDINE (FAMOTIDINE) (TABLETS) [Concomitant]
  6. CITALOPRAM (CITALOPRAM) (TABLETS) [Concomitant]
  7. POTASSIUM CHLORIDE (POTASSIUM CHLORIDE) (TABLETS) [Concomitant]
  8. LORAZEPAM (LORAZEPAM) (TABLETS) [Concomitant]
  9. PROAIR (FLUTICASONE PROPIONATE) (INHALANT) [Concomitant]
  10. AFRIN (AFRIN /OLD FORM/) (SOLUTION) [Concomitant]
  11. SENNA S (COLOXYL WITH SENNA) (TABLETS) [Concomitant]
  12. ADVAIR (SERETIDE MITE) (UNKNOWN) [Concomitant]
  13. COMPAZINE (PROCHLORPERAZINE EDISYLATE) (TABLETS) [Concomitant]
  14. ATIVAN (LORAZEPAM) (TABLETS) [Concomitant]
  15. BACTRIM (BACTRIM) (TABLETS) [Concomitant]
  16. ZOMETA (ZOLEDRONIC ACID) (INJECTION) [Concomitant]
  17. PRILOSEC (OMEPRAZOLE) (CAPSULES0 [Concomitant]
  18. OXYCODONE (OXYCODONE) (TABLETS) [Concomitant]
  19. SUMATRIPTAN (SUMATRIPTAN) (UNKNOWN) [Concomitant]
  20. KCL (POTASSIUM CHLORIDE) (UNKNOWN) [Concomitant]

REACTIONS (3)
  - Thrombocytopenia [None]
  - Neutrophil count decreased [None]
  - Neutropenia [None]
